FAERS Safety Report 5611307-4 (Version None)
Quarter: 2008Q1

REPORT INFORMATION
  Report Type: 
  Country: None (occurrence: None)
  Receive Date: 20080201
  Receipt Date: 20080121
  Transmission Date: 20080703
  Serious: Yes (Hospitalization)
  Sender: FDA-Public Use
  Company Number: FR-ROCHE-542875

PATIENT
  Age: 47 Year
  Sex: Male

DRUGS (6)
  1. PEGASYS [Suspect]
     Indication: HEPATITIS C
     Route: 065
     Dates: start: 20070801
  2. REBETOL [Concomitant]
     Indication: HEPATITIS C
  3. DIURETICS NOS [Concomitant]
  4. BETA BLOCKER NOS [Concomitant]
     Dosage: DRUG NAME REPORTED: BETA ADRENERGIC BLOCKING AGENT.
  5. COVERSYL [Concomitant]
  6. PLATELET AGGREGATION INHIBITORS [Concomitant]

REACTIONS (4)
  - EXTREMITY NECROSIS [None]
  - LEUKOPENIA [None]
  - NECROSIS [None]
  - RAYNAUD'S PHENOMENON [None]
